FAERS Safety Report 21048655 (Version 1)
Quarter: 2022Q3

REPORT INFORMATION
  Report Type: Spontaneous
  Country: US (occurrence: None)
  Receive Date: 20220705
  Receipt Date: 20220705
  Transmission Date: 20221027
  Serious: No
  Sender: FDA-Public Use
  Company Number: None

PATIENT
  Age: 61 Year
  Sex: Male
  Weight: 92.25 kg

DRUGS (12)
  1. FAMOTIDINE [Suspect]
     Active Substance: FAMOTIDINE
     Indication: Gastrooesophageal reflux disease
     Dates: start: 20220701, end: 20220703
  2. LYRICA [Concomitant]
     Active Substance: PREGABALIN
  3. VERAPAMIL [Concomitant]
  4. MS MORPHINE [Concomitant]
  5. OXYCODONE [Concomitant]
     Active Substance: OXYCODONE
  6. IMITREX [Concomitant]
     Active Substance: SUMATRIPTAN SUCCINATE
  7. FLEXERAL [Concomitant]
  8. FISH OIL [Concomitant]
     Active Substance: FISH OIL
  9. GARLIC [Concomitant]
     Active Substance: GARLIC
  10. ALOE VERA LEAF [Concomitant]
     Active Substance: ALOE VERA LEAF
  11. VITAMINS [Concomitant]
     Active Substance: VITAMINS
  12. BENADRYL [Concomitant]

REACTIONS (1)
  - Stomatitis [None]

NARRATIVE: CASE EVENT DATE: 20220701
